FAERS Safety Report 19923775 (Version 1)
Quarter: 2021Q4

REPORT INFORMATION
  Report Type: Spontaneous
  Country: DE (occurrence: DE)
  Receive Date: 20211006
  Receipt Date: 20211006
  Transmission Date: 20220304
  Serious: Yes (Other)
  Sender: FDA-Public Use
  Company Number: DE-LUPIN PHARMACEUTICALS INC.-2021-18781

PATIENT
  Age: 60 Year
  Sex: Male

DRUGS (2)
  1. METHYLPREDNISOLONE [Suspect]
     Active Substance: METHYLPREDNISOLONE
     Indication: Primary progressive multiple sclerosis
     Dosage: 1000 MILLIGRAM, QD (HIGH DOSE, 3-5 DAYS, EVERY 3 MONTHS)
     Route: 042
  2. TRETINOIN [Concomitant]
     Active Substance: TRETINOIN
     Indication: Primary progressive multiple sclerosis
     Dosage: 45 MILLIGRAM/SQ. METER, QD (A 30-DAY INDUCTION PHASE WITH 45MG/M2 FOLLOWED BY 3 CYCLES OF CONSOLIDAT
     Route: 048

REACTIONS (1)
  - Drug ineffective [Unknown]
